FAERS Safety Report 9390271 (Version 2)
Quarter: 2014Q1

REPORT INFORMATION
  Report Type: Spontaneous
  Country: US (occurrence: US)
  Receive Date: 20130709
  Receipt Date: 20140114
  Transmission Date: 20141002
  Serious: Yes (Hospitalization, Disabling, Other)
  Sender: FDA-Public Use
  Company Number: US-009507513-1307USA001969

PATIENT
  Sex: Female
  Weight: 88.44 kg

DRUGS (1)
  1. NUVARING [Suspect]
     Indication: CONTRACEPTION
     Dosage: RING 3 WKS IN, 1 WK OUT
     Route: 067
     Dates: start: 200401, end: 20060611

REACTIONS (26)
  - Cellulitis [Recovered/Resolved]
  - Pulmonary embolism [Unknown]
  - Deep vein thrombosis [Unknown]
  - Diastolic dysfunction [Unknown]
  - Depression [Unknown]
  - Drug ineffective [Unknown]
  - Diarrhoea [Unknown]
  - Hypothyroidism [Unknown]
  - Hypercoagulation [Unknown]
  - Menstrual disorder [Unknown]
  - Menstrual disorder [Unknown]
  - Chest pain [Unknown]
  - Anxiety [Unknown]
  - Sciatica [Unknown]
  - Eye infection [Unknown]
  - Intervertebral disc protrusion [Unknown]
  - Spinal fusion surgery [Unknown]
  - Dyspnoea [Unknown]
  - Meniscus injury [Unknown]
  - Knee operation [Unknown]
  - Joint injury [Unknown]
  - Vocal cord paralysis [Unknown]
  - Arthropathy [Unknown]
  - Tendon injury [Unknown]
  - Tendon operation [Unknown]
  - Spinal operation [Unknown]
